FAERS Safety Report 9165771 (Version 2)
Quarter: 2013Q2

REPORT INFORMATION
  Report Type: Report from Study
  Country: FR (occurrence: FR)
  Receive Date: 20130315
  Receipt Date: 20130626
  Transmission Date: 20140414
  Serious: Yes (Other)
  Sender: FDA-Public Use
  Company Number: FR-CELGENEUS-056-C4047-13030754

PATIENT
  Age: 66 Year
  Sex: Male
  Weight: 82 kg

DRUGS (8)
  1. CC-4047 [Suspect]
     Indication: PLASMA CELL MYELOMA
     Dosage: 4 MILLIGRAM
     Route: 048
     Dates: start: 20121108
  2. CC-4047 [Suspect]
     Dosage: 40 MILLIGRAM
     Route: 048
     Dates: start: 20121108
  3. DEXAMETHASONE [Suspect]
     Indication: PLASMA CELL MYELOMA
     Dosage: 40 MILLIGRAM
     Route: 065
  4. ZOMETA [Concomitant]
     Indication: PRODUCT USED FOR UNKNOWN INDICATION
     Dosage: 4 MILLIGRAM
     Route: 065
  5. PREVISCAN [Concomitant]
     Indication: PRODUCT USED FOR UNKNOWN INDICATION
     Dosage: 1 MILLIGRAM
     Route: 065
  6. PREVISCAN [Concomitant]
     Dosage: 1 GRAM
     Route: 065
  7. MORPHINE [Concomitant]
     Indication: PRODUCT USED FOR UNKNOWN INDICATION
     Route: 065
  8. PREDNISONE [Concomitant]
     Indication: PRODUCT USED FOR UNKNOWN INDICATION
     Route: 065

REACTIONS (11)
  - Spinal compression fracture [Unknown]
  - Bone marrow tumour cell infiltration [Recovering/Resolving]
  - Anaemia [Recovered/Resolved]
  - Ageusia [Unknown]
  - Somnolence [Recovered/Resolved]
  - Dysphonia [Recovered/Resolved]
  - Creatinine renal clearance abnormal [Recovered/Resolved]
  - Leukopenia [Recovering/Resolving]
  - Platelet count decreased [Recovered/Resolved]
  - Tendon injury [Recovered/Resolved]
  - Tendon disorder [Recovered/Resolved]
